FAERS Safety Report 4667435-3 (Version None)
Quarter: 2005Q2

REPORT INFORMATION
  Report Type: 
  Country: None (occurrence: None)
  Receive Date: 20050520
  Receipt Date: 20050207
  Transmission Date: 20051028
  Serious: Yes (Other)
  Sender: FDA-Public Use
  Company Number: PHEH2005US01810

PATIENT
  Age: 62 Year
  Sex: Female

DRUGS (1)
  1. AREDIA [Suspect]
     Indication: BONE DISORDER
     Dosage: UNK, UNK

REACTIONS (4)
  - BONE DEBRIDEMENT [None]
  - FISTULA [None]
  - OSTEONECROSIS [None]
  - TOOTH EXTRACTION [None]
